FAERS Safety Report 8963480 (Version 2)
Quarter: 2013Q3

REPORT INFORMATION
  Report Type: Spontaneous
  Country: US (occurrence: US)
  Receive Date: 20121213
  Receipt Date: 20130821
  Transmission Date: 20140515
  Serious: Yes (Other)
  Sender: FDA-Public Use
  Company Number: CHPA2012US024689

PATIENT
  Age: 62 Year
  Sex: Male

DRUGS (5)
  1. MAALOX ADV MAXIMUM STRENGTH ANTACID/ANTIGAS [Suspect]
     Indication: GASTROOESOPHAGEAL REFLUX DISEASE
     Dosage: UNK, UNK
     Route: 048
     Dates: start: 2006, end: 201208
  2. LISINOPRIL [Suspect]
     Dosage: UNK, UNK
  3. LOVASTATIN [Suspect]
     Dosage: UNK, UNK
     Dates: start: 2010
  4. TRILIPIX [Suspect]
     Indication: BLOOD CHOLESTEROL INCREASED
     Dosage: UNK,UNK
     Dates: start: 2010
  5. NEXIUM//ESOMEPRAZOLE SODIUM [Concomitant]
     Dosage: UNK,UNK
     Dates: start: 201111

REACTIONS (5)
  - Ulcer [Recovered/Resolved]
  - Barrett^s oesophagus [Recovered/Resolved]
  - Gastritis [Recovered/Resolved]
  - Therapeutic response unexpected [Unknown]
  - Off label use [Unknown]
